FAERS Safety Report 24668164 (Version 1)
Quarter: 2024Q4

REPORT INFORMATION
  Report Type: Report from Study
  Country: US (occurrence: US)
  Receive Date: 20241127
  Receipt Date: 20241127
  Transmission Date: 20250114
  Serious: Yes (Other)
  Sender: UCB
  Company Number: US-UCBSA-2024048122

PATIENT
  Age: 41 Year
  Sex: Male

DRUGS (2)
  1. FINTEPLA [Suspect]
     Active Substance: FENFLURAMINE
     Indication: Lennox-Gastaut syndrome
     Dosage: 6 MILLILITER, 3X/DAY (TID)
     Dates: start: 20230624
  2. FINTEPLA [Suspect]
     Active Substance: FENFLURAMINE
     Dosage: 2.2MG/KG/DAY
     Dates: start: 20230710

REACTIONS (2)
  - Mitral valve incompetence [Unknown]
  - Off label use [Unknown]

NARRATIVE: CASE EVENT DATE: 20241111
